FAERS Safety Report 11588356 (Version 1)
Quarter: 2015Q4

REPORT INFORMATION
  Report Type: Spontaneous
  Country: US (occurrence: None)
  Receive Date: 20151001
  Receipt Date: 20151001
  Transmission Date: 20160304
  Serious: Yes (Other)
  Sender: FDA-Public Use
  Company Number: None

PATIENT
  Sex: Female

DRUGS (1)
  1. ABILIFY/GENERIC ARIPIPRAZOLE 5MG ? I DON^T KNOW [Suspect]
     Active Substance: ARIPIPRAZOLE
     Indication: AFFECTIVE DISORDER
     Dosage: FOR LAST III WEEKS
     Route: 048

REACTIONS (4)
  - Tremor [None]
  - Alopecia [None]
  - Activities of daily living impaired [None]
  - Product substitution issue [None]
